FAERS Safety Report 9015766 (Version 1)
Quarter: 2013Q1

REPORT INFORMATION
  Report Type: Spontaneous
  Country: DE (occurrence: None)
  Receive Date: 20130102
  Receipt Date: 20130102
  Transmission Date: 20140127
  Serious: Yes (Life-Threatening, Hospitalization, Other)
  Sender: FDA-Public Use
  Company Number: 2009EU002847

PATIENT
  Age: 67 Year
  Sex: Male

DRUGS (50)
  1. TACROLIMUS SYSTEMIC (TACROLIMUS) [Suspect]
     Indication: PROPHYLAXIS AGAINST TRANSPLANT REJECTION
     Route: 048
     Dates: start: 20030430
  2. DACLIZUMAB [Suspect]
     Indication: PROPHYLAXIS AGAINST TRANSPLANT REJECTION
     Route: 042
     Dates: start: 20030430, end: 20030430
  3. MYCOPHENOLATE MOFETIL [Suspect]
     Indication: PROPHYLAXIS AGAINST TRANSPLANT REJECTION
     Dosage: UID/QD
     Route: 048
     Dates: start: 20030430, end: 20031011
  4. MYCOPHENOLATE MOFETIL [Suspect]
     Indication: PROPHYLAXIS AGAINST TRANSPLANT REJECTION
     Route: 048
     Dates: start: 20031118, end: 20031119
  5. CICLOSPORIN [Suspect]
     Indication: PROPHYLAXIS AGAINST TRANSPLANT REJECTION
  6. SIROLIMUS [Suspect]
     Indication: PROPHYLAXIS AGAINST TRANSPLANT REJECTION
  7. DECORTIN H [Suspect]
     Indication: PROPHYLAXIS AGAINST TRANSPLANT REJECTION
     Dosage: TOTAL DOSE
     Route: 048
     Dates: start: 20030501, end: 20030501
  8. SOLU DECORTIN H [Suspect]
     Indication: PROPHYLAXIS AGAINST TRANSPLANT REJECTION
     Dosage: TOTAL DOSE
     Route: 042
     Dates: start: 20030430, end: 20030430
  9. PANTOZOL (PANTOPRAZOLE SODIUM) [Concomitant]
  10. ROCALTROL (CALCITRIOL) [Concomitant]
  11. SPASMEX (TROSPIUM CHLORIDE) [Concomitant]
  12. ACTRAPHANE (INSULIN HUMAN, INSULIN HUMAN INJECTION, ISOPHANE) [Concomitant]
  13. CALCET (ERGOCALCIFEROL) [Concomitant]
  14. AMPHO MORONAL (AMPHOTERICIN B) [Concomitant]
  15. VIGANTOLETTEN (COLECALCIFEROL) [Concomitant]
  16. NYSTATIN (NYSTATIN) [Concomitant]
  17. ASS (ACETYLSALICYLIC ACID) [Concomitant]
  18. CALCIUM (CALCIUM) [Concomitant]
  19. CARBAMAZEPIN (CARBAMAZEPINE) [Concomitant]
  20. ACICLOVIR (ACICLOVIR) [Concomitant]
  21. DELIX (RAMIPRIL) [Concomitant]
  22. CATAPRESSAN (CLONIDINE) [Concomitant]
  23. NEPRESOL (DIHYDRALAZINE SULFATE) [Concomitant]
  24. ISOKET RETARD (ISOSORBIDE DINITRATE) [Concomitant]
  25. KALINOR-ACID (CITRIC ACID, POTASSIUM CITRATE, POTASSIUM BICARBONATE) [Concomitant]
  26. BERODUAL (FENOTEROL HYDROBROMIDE, IPRATROPIUM BROMIDE) [Concomitant]
  27. MOXONIDINE (MOXONIDINE) [Concomitant]
  28. ACTRAPID (INSULIN HUMAN) [Concomitant]
  29. AMLODIPIN (AMLODIPINE BESILATE) [Concomitant]
  30. ATROVENT (IPRATROPIUM BROMIDE) [Concomitant]
  31. TROSPIUM CHLORIDE (TROSPIUM CHLORIDE) [Concomitant]
  32. DILATREND (CARVEDILOL) [Concomitant]
  33. CEFOTIAM (CEFOTIAM HYDROCHLORIDE) [Concomitant]
  34. CIPROBAY (CIPROFLOXACIN) [Concomitant]
  35. CLOPIDOGREL BISULFATE (CLOPIDOGREL BISULFATE) [Concomitant]
  36. FLUVASTATIN (FLUVASTATIN SODIUM) [Concomitant]
  37. LASIX (FUROSEMIDE) [Concomitant]
  38. FUROSEMID (FUROSEMIDE) [Concomitant]
  39. CYMEVEN (GANCICLOVIR SODIUM) [Concomitant]
  40. LIQUEMIN (HEPARIN SODIUM) [Concomitant]
  41. HYDROCHLOROTHIAZID (HYDROCHLOROTHIAZIDE) [Concomitant]
  42. ISOSORBIDE (ISOSORBIDE DINITRATE) [Concomitant]
  43. CORVATON (MOLSIDOMINE) [Concomitant]
  44. NEORECORMON (EPOETIN BETA) [Concomitant]
  45. BAYOTENSIN (NITRENDIPINE) [Concomitant]
  46. PRAVASIN (PRAZOSIN HYDROCHLORIDE) [Concomitant]
  47. MINIPRESS (PRAZOSIN HYDROCHLORIDE) [Concomitant]
  48. PROTAPHANE (ISOPHANE INSULIN) [Concomitant]
  49. ACTONEL EINMAL WOECHENTLICH (RISEDRONIC ACID) [Concomitant]
  50. SULTANOL (SALBUTAMOL) [Concomitant]

REACTIONS (16)
  - Myocardial infarction [None]
  - Angina unstable [None]
  - Diabetes mellitus inadequate control [None]
  - Cardiac failure [None]
  - Urinary tract infection [None]
  - Renal failure [None]
  - Femoral neck fracture [None]
  - Cellulitis [None]
  - Herpes zoster [None]
  - Nephropathy [None]
  - Renal artery stenosis [None]
  - Angina pectoris [None]
  - Peritoneal hernia [None]
  - Fluid retention [None]
  - Hypertension [None]
  - Fall [None]
